FAERS Safety Report 24286987 (Version 1)
Quarter: 2024Q3

REPORT INFORMATION
  Report Type: Spontaneous
  Country: SA (occurrence: SA)
  Receive Date: 20240905
  Receipt Date: 20240905
  Transmission Date: 20241017
  Serious: Yes (Death, Other)
  Sender: BAXTER
  Company Number: SA-BAXTER-2024BAX023855

PATIENT

DRUGS (13)
  1. DEXTROSE [Suspect]
     Active Substance: DEXTROSE\DEXTROSE MONOHYDRATE
     Indication: Parenteral nutrition
     Dosage: BAXTER DEXTROSE 70% 1990 BAG
     Route: 065
  2. PRIMENE [Suspect]
     Active Substance: ALANINE\ARGININE\ASPARTIC ACID\CYSTEINE\GLUTAMIC ACID\GLYCINE\HISTIDINE\ISOLEUCINE\LEUCINE\LYSINE\ME
     Indication: Parenteral nutrition
     Dosage: BAXTER PRIMENE 10% 240 BOTTLE
     Route: 065
  3. WATER FOR INJECTION [Suspect]
     Active Substance: WATER
     Indication: Parenteral nutrition
     Dosage: BAXTER WATER FOR INJECTION 1995 BAG
     Route: 065
  4. HEPARIN [Suspect]
     Active Substance: HEPARIN SODIUM
     Indication: Parenteral nutrition
     Dosage: (HEPARIN PF)
     Route: 065
  5. MAGNESIUM SULFATE [Suspect]
     Active Substance: MAGNESIUM SULFATE\MAGNESIUM SULFATE HEPTAHYDRATE
     Indication: Parenteral nutrition
     Dosage: (MG S04 50%)
     Route: 065
  6. SODIUM PHOSPHATE [Suspect]
     Active Substance: SODIUM PHOSPHATE
     Indication: Parenteral nutrition
     Dosage: (NA PO4 (GLYCOPHOS))
     Route: 065
  7. VITAMINS [Suspect]
     Active Substance: VITAMINS
     Indication: Parenteral nutrition
     Dosage: (SOLUVITN PED)
     Route: 065
  8. ZINC [Suspect]
     Active Substance: ZINC
     Indication: Parenteral nutrition
     Dosage: UNK
     Route: 065
  9. CALCIUM GLUCONATE [Suspect]
     Active Substance: CALCIUM GLUCONATE
     Indication: Parenteral nutrition
     Dosage: (A. R. INC CA GLUG 10% 900 BAG)
     Route: 065
  10. POTASSIUM ACETATE [Suspect]
     Active Substance: POTASSIUM ACETATE
     Indication: Parenteral nutrition
     Dosage: (HOSPIRA K ACETATE 55 SYRINGE)
     Route: 065
  11. POTASSIUM CHLORIDE [Suspect]
     Active Substance: POTASSIUM CHLORIDE
     Indication: Parenteral nutrition
     Dosage: (HOSPIRA K CHLORIDE 240 BAG)
     Route: 065
  12. SODIUM ACETATE [Suspect]
     Active Substance: SODIUM ACETATE
     Indication: Parenteral nutrition
     Dosage: (HOSPIRA NA ACETATE 490 BAG)
     Route: 065
  13. SODIUM CHLORIDE [Suspect]
     Active Substance: SODIUM CHLORIDE
     Indication: Parenteral nutrition
     Dosage: (PSI NA CHLORIDE 14.6% 420 BAG)
     Route: 065

REACTIONS (1)
  - Death [Fatal]
